FAERS Safety Report 20812491 (Version 3)
Quarter: 2022Q2

REPORT INFORMATION
  Report Type: Report from Study
  Country: None (occurrence: CN)
  Receive Date: 20220511
  Receipt Date: 20220607
  Transmission Date: 20220721
  Serious: Yes (Hospitalization)
  Sender: FDA-Public Use
  Company Number: CN-Jiangsu Hengrui Medicine Co., Ltd.-2128662

PATIENT
  Age: 67 Year
  Sex: Male
  Weight: 75 kg

DRUGS (8)
  1. OXALIPLATIN [Suspect]
     Active Substance: OXALIPLATIN
     Indication: Gastric cancer
     Route: 041
     Dates: start: 20220318, end: 20220318
  2. SERPLULIMAB [Suspect]
     Active Substance: SERPLULIMAB
     Route: 041
     Dates: start: 20220318, end: 20220318
  3. GIMERACIL\OTERACIL\TEGAFUR [Suspect]
     Active Substance: GIMERACIL\OTERACIL\TEGAFUR
     Route: 048
     Dates: start: 20220318, end: 20220318
  4. Teprenone Capsules [Concomitant]
     Route: 048
     Dates: start: 20220304, end: 20220422
  5. Iron Polysaccharide Complex Capsules [Concomitant]
     Route: 048
     Dates: start: 20220306, end: 20220422
  6. Wu Zhi Jiao Nang [Concomitant]
     Route: 048
     Dates: start: 20220402, end: 20220422
  7. Silibinin Capsules [Concomitant]
     Route: 048
     Dates: start: 20220402, end: 20220422
  8. Pantoprazole Sodium Enteric-coated [Concomitant]
     Route: 048
     Dates: start: 20220408, end: 20220414

REACTIONS (2)
  - Platelet count decreased [Recovered/Resolved]
  - Drug-induced liver injury [Recovered/Resolved]

NARRATIVE: CASE EVENT DATE: 20220416
